FAERS Safety Report 5492041-0 (Version None)
Quarter: 2007Q4

REPORT INFORMATION
  Report Type: 
  Country: None (occurrence: None)
  Receive Date: 20071018
  Receipt Date: 20071018
  Transmission Date: 20080405
  Serious: Yes (Life-Threatening)
  Sender: FDA-Public Use
  Company Number: None

PATIENT
  Age: 66 Year
  Sex: Male
  Weight: 105 kg

DRUGS (1)
  1. ARIXTRA [Suspect]
     Dosage: 5MG DAILY SQ
     Route: 058

REACTIONS (4)
  - BLOOD FIBRINOGEN ABNORMAL [None]
  - CEREBRAL HAEMORRHAGE [None]
  - METASTASES TO MENINGES [None]
  - PLATELET COUNT ABNORMAL [None]
